FAERS Safety Report 7226912-1 (Version None)
Quarter: 2011Q1

REPORT INFORMATION
  Report Type: 
  Country: None (occurrence: None)
  Receive Date: 20110105
  Receipt Date: 20101221
  Transmission Date: 20110831
  Serious: Yes (Other)
  Sender: FDA-Public Use
  Company Number: 024214

PATIENT
  Sex: Female

DRUGS (4)
  1. CIMZIA [Suspect]
     Indication: RHEUMATOID ARTHRITIS
     Dosage: SEE IMAGE: SUBCUTANEOUS
     Route: 058
     Dates: start: 20100901
  2. CIMZIA [Suspect]
     Indication: RHEUMATOID ARTHRITIS
     Dosage: SEE IMAGE: SUBCUTANEOUS
     Route: 058
     Dates: start: 20100901
  3. CIMZIA [Suspect]
     Indication: RHEUMATOID ARTHRITIS
     Dosage: SEE IMAGE: SUBCUTANEOUS
     Route: 058
     Dates: start: 20100901
  4. MTX [Concomitant]

REACTIONS (3)
  - HELICOBACTER INFECTION [None]
  - DRUG ERUPTION [None]
  - SKIN TEST POSITIVE [None]
